FAERS Safety Report 9824914 (Version 2)
Quarter: 2014Q1

REPORT INFORMATION
  Report Type: Spontaneous
  Country: US (occurrence: US)
  Receive Date: 20140117
  Receipt Date: 20140306
  Transmission Date: 20141002
  Serious: Yes (Hospitalization)
  Sender: FDA-Public Use
  Company Number: US-BRISTOL-MYERS SQUIBB COMPANY-19987387

PATIENT
  Age: 90 Year
  Sex: Female
  Weight: 63.49 kg

DRUGS (4)
  1. ELIQUIS [Suspect]
     Dates: start: 201305
  2. LEVOTHYROXINE [Concomitant]
  3. QUINAPRIL [Concomitant]
  4. PROPANOLOL HYDROCHLORIDE [Concomitant]

REACTIONS (3)
  - Gastric ulcer haemorrhage [Unknown]
  - Cardiac failure congestive [Unknown]
  - Pneumonia [Unknown]
